FAERS Safety Report 26213676 (Version 1)
Quarter: 2025Q4

REPORT INFORMATION
  Report Type: Spontaneous
  Country: EU (occurrence: EU)
  Receive Date: 20251230
  Receipt Date: 20251230
  Transmission Date: 20260117
  Serious: Yes (Death, Other)
  Sender: AMGEN
  Company Number: EU-AMGEN-POLSP2025254890

PATIENT

DRUGS (6)
  1. BEVACIZUMAB [Suspect]
     Active Substance: BEVACIZUMAB
     Indication: Cervix carcinoma recurrent
     Dosage: UNK
     Route: 065
  2. BEVACIZUMAB [Suspect]
     Active Substance: BEVACIZUMAB
     Indication: Cervix cancer metastatic
  3. CEMIPLIMAB [Suspect]
     Active Substance: CEMIPLIMAB
     Indication: Cervix cancer metastatic
     Dosage: 350 MILLIGRAM, Q3WK
     Route: 040
  4. CEMIPLIMAB [Suspect]
     Active Substance: CEMIPLIMAB
     Indication: Cervix carcinoma recurrent
  5. PEMBROLIZUMAB [Suspect]
     Active Substance: PEMBROLIZUMAB
     Indication: Cervix carcinoma recurrent
     Dosage: 200 MILLIGRAM, Q3WK
     Route: 040
  6. PEMBROLIZUMAB [Suspect]
     Active Substance: PEMBROLIZUMAB
     Indication: Cervix cancer metastatic

REACTIONS (12)
  - Death [Fatal]
  - Cervix carcinoma recurrent [Unknown]
  - Cervix cancer metastatic [Unknown]
  - Hepatotoxicity [Unknown]
  - Metastases to bone [Unknown]
  - Metastatic neoplasm [Unknown]
  - Posterior reversible encephalopathy syndrome [Unknown]
  - Skin toxicity [Unknown]
  - Anaemia [Unknown]
  - Thyroid disorder [Unknown]
  - Infusion related reaction [Unknown]
  - Musculoskeletal pain [Unknown]
